FAERS Safety Report 4875405-5 (Version None)
Quarter: 2006Q1

REPORT INFORMATION
  Report Type: 
  Country: None (occurrence: None)
  Receive Date: 20060104
  Receipt Date: 20051219
  Transmission Date: 20060701
  Serious: Yes (Hospitalization)
  Sender: FDA-Public Use
  Company Number: PAR_0452_2005

PATIENT

DRUGS (3)
  1. VERAPAMIL [Suspect]
     Indication: HEART RATE IRREGULAR
     Dosage: 240 MG QD PO
     Route: 048
  2. DIGOXIN [Concomitant]
  3. WARFARIN [Concomitant]

REACTIONS (15)
  - ATRIAL FIBRILLATION [None]
  - BLOOD PRESSURE IMMEASURABLE [None]
  - CARDIOMEGALY [None]
  - CARDIOMYOPATHY [None]
  - CONFUSIONAL STATE [None]
  - CYANOSIS [None]
  - DEPRESSED LEVEL OF CONSCIOUSNESS [None]
  - DIZZINESS [None]
  - DRUG TOXICITY [None]
  - HYPOTENSION [None]
  - OXYGEN SATURATION IMMEASURABLE [None]
  - PERIPHERAL COLDNESS [None]
  - PULSE ABSENT [None]
  - VENTRICULAR DYSFUNCTION [None]
  - VOMITING [None]
